FAERS Safety Report 22292074 (Version 2)
Quarter: 2023Q2

REPORT INFORMATION
  Report Type: Spontaneous
  Country: US (occurrence: US)
  Receive Date: 20230508
  Receipt Date: 20230512
  Transmission Date: 20230722
  Serious: Yes (Life-Threatening, Hospitalization, Other)
  Sender: FDA-Public Use
  Company Number: US-MLMSERVICE-20230419-4234114-1

PATIENT
  Age: 36 Year
  Sex: Male

DRUGS (3)
  1. OLANZAPINE [Suspect]
     Active Substance: OLANZAPINE
     Indication: Schizophrenia
     Dosage: UNK
     Route: 065
  2. RIVAROXABAN [Concomitant]
     Active Substance: RIVAROXABAN
     Indication: Venous arterialisation
     Dosage: UNK
     Route: 065
  3. RIVAROXABAN [Concomitant]
     Active Substance: RIVAROXABAN
     Indication: Factor V Leiden mutation

REACTIONS (10)
  - Cardiogenic shock [Recovering/Resolving]
  - Vena cava thrombosis [Recovering/Resolving]
  - Cardiac arrest [Recovering/Resolving]
  - Cardiac ventricular thrombosis [Recovered/Resolved]
  - Ventricular fibrillation [Recovering/Resolving]
  - Acute myocardial infarction [Recovering/Resolving]
  - Coronary artery occlusion [Recovering/Resolving]
  - Pulmonary embolism [Recovering/Resolving]
  - Escherichia bacteraemia [Recovering/Resolving]
  - Acute coronary syndrome [Recovering/Resolving]
